FAERS Safety Report 8905494 (Version 1)
Quarter: 2012Q4

REPORT INFORMATION
  Report Type: 
  Country: BR (occurrence: BR)
  Receive Date: 20121109
  Receipt Date: 20121109
  Transmission Date: 20130627
  Serious: Yes (Other)
  Sender: FDA-Public Use
  Company Number: BR-PFIZER INC-2012278607

PATIENT
  Sex: Male

DRUGS (2)
  1. PRISTIQ [Suspect]
     Dosage: UNK
     Dates: start: 2009
  2. SIBUTRAMINE [Suspect]
     Dosage: UNK
     Dates: start: 201210

REACTIONS (8)
  - Dizziness [Unknown]
  - Serotonin syndrome [Unknown]
  - Wrong technique in drug usage process [Unknown]
  - Feeling abnormal [Unknown]
  - Hypoaesthesia [Unknown]
  - Hypoaesthesia oral [Unknown]
  - Abnormal dreams [Unknown]
  - Depression [Unknown]
